FAERS Safety Report 8985440 (Version 2)
Quarter: 2013Q3

REPORT INFORMATION
  Report Type: Spontaneous
  Country: JP (occurrence: JP)
  Receive Date: 20121226
  Receipt Date: 20130813
  Transmission Date: 20140515
  Serious: Yes (Life-Threatening, Hospitalization, Other)
  Sender: FDA-Public Use
  Company Number: JP-PFIZER INC-2012322514

PATIENT
  Age: 15 Year
  Sex: Male
  Weight: 43.5 kg

DRUGS (1)
  1. SOMATROPIN [Suspect]
     Indication: BODY HEIGHT BELOW NORMAL
     Dosage: UNK
     Route: 058
     Dates: start: 199912, end: 200011

REACTIONS (1)
  - Hepatocellular carcinoma [Recovering/Resolving]
